FAERS Safety Report 4459491-2 (Version None)
Quarter: 2004Q3

REPORT INFORMATION
  Report Type: 
  Country: None (occurrence: None)
  Receive Date: 20040910
  Receipt Date: 20040624
  Transmission Date: 20050211
  Serious: Yes (Other)
  Sender: FDA-Public Use
  Company Number: 2004213241US

PATIENT
  Age: 48 Year
  Sex: Male
  Weight: 80.3 kg

DRUGS (2)
  1. BEXTRA [Suspect]
     Dosage: 20 MG, QD
     Dates: start: 20040423, end: 20040505
  2. LISINOPRIL [Concomitant]

REACTIONS (1)
  - GASTROINTESTINAL HAEMORRHAGE [None]
